FAERS Safety Report 6268449-2 (Version None)
Quarter: 2009Q3

REPORT INFORMATION
  Report Type: 
  Country: None (occurrence: None)
  Receive Date: 20090715
  Receipt Date: 20090703
  Transmission Date: 20100115
  Serious: Yes (Hospitalization)
  Sender: FDA-Public Use
  Company Number: FR-PFIZER INC-2009234650

PATIENT
  Age: 82 Year

DRUGS (10)
  1. ALDACTONE [Suspect]
     Dosage: 25 MG, 1X/DAY
     Route: 048
     Dates: end: 20080503
  2. ALDACTAZINE [Suspect]
     Dosage: 1 DF, 1X/DAY
     Route: 048
     Dates: end: 20080503
  3. ZESTRIL [Suspect]
     Dosage: 20 MG, 1X/DAY
     Route: 048
     Dates: end: 20080503
  4. DIFFU K [Suspect]
     Dosage: UNK
     Route: 048
     Dates: end: 20080503
  5. KARDEGIC [Concomitant]
  6. ZOCOR [Concomitant]
  7. DETENSIEL [Concomitant]
  8. IKOREL [Concomitant]
  9. LASIX [Concomitant]
  10. MOPRAL [Concomitant]

REACTIONS (2)
  - BUNDLE BRANCH BLOCK [None]
  - HYPERKALAEMIA [None]
